FAERS Safety Report 6527672-X (Version None)
Quarter: 2010Q1

REPORT INFORMATION
  Report Type: 
  Country: None (occurrence: None)
  Receive Date: 20100105
  Receipt Date: 20091123
  Transmission Date: 20100710
  Serious: Yes (Disabling)
  Sender: FDA-Public Use
  Company Number: US-MERCK-0910USA00848

PATIENT
  Age: 68 Year
  Sex: Male

DRUGS (2)
  1. IVEMEND [Suspect]
     Indication: PROPHYLAXIS OF NAUSEA AND VOMITING
     Route: 042
     Dates: start: 20091007, end: 20091007
  2. CISPLATIN [Concomitant]
     Route: 065

REACTIONS (7)
  - ABDOMINAL DISCOMFORT [None]
  - HYPERSENSITIVITY [None]
  - HYPOTENSION [None]
  - MUSCULOSKELETAL DISCOMFORT [None]
  - PRURITUS [None]
  - SYNCOPE [None]
  - UNRESPONSIVE TO STIMULI [None]
